FAERS Safety Report 9007174 (Version 1)
Quarter: 2013Q1

REPORT INFORMATION
  Report Type: Spontaneous
  Country: US (occurrence: US)
  Receive Date: 20130110
  Receipt Date: 20130110
  Transmission Date: 20140127
  Serious: No
  Sender: FDA-Public Use
  Company Number: US-PFIZER INC-2013009785

PATIENT
  Age: 11 Year
  Sex: Female
  Weight: 18 kg

DRUGS (1)
  1. GENOTROPIN [Suspect]
     Indication: GROWTH HORMONE DEFICIENCY
     Dosage: UNK, 1XDAY
     Route: 058
     Dates: start: 201210

REACTIONS (1)
  - Injection site pain [Unknown]
